FAERS Safety Report 8169941-6 (Version None)
Quarter: 2012Q1

REPORT INFORMATION
  Report Type: 
  Country: None (occurrence: None)
  Receive Date: 20120228
  Receipt Date: 20120228
  Transmission Date: 20120608
  Serious: Yes (Life-Threatening, Hospitalization)
  Sender: FDA-Public Use
  Company Number: None

PATIENT
  Sex: Female
  Weight: 70.8 kg

DRUGS (2)
  1. PLAVIX [Concomitant]
     Indication: ATRIAL FIBRILLATION
     Dosage: 37.5MG
     Route: 048
  2. ARIXTRA [Suspect]
     Indication: THROMBOSIS PROPHYLAXIS
     Dosage: 2.5MG
     Route: 058
     Dates: start: 20120211, end: 20120221

REACTIONS (3)
  - FALL [None]
  - INTRA-ABDOMINAL HAEMATOMA [None]
  - SHOCK HAEMORRHAGIC [None]
